FAERS Safety Report 8161482-5 (Version None)
Quarter: 2012Q1

REPORT INFORMATION
  Report Type: 
  Country: None (occurrence: None)
  Receive Date: 20120224
  Receipt Date: 20120220
  Transmission Date: 20120608
  Serious: Yes (Life-Threatening, Hospitalization)
  Sender: FDA-Public Use
  Company Number: US-BAYER-2011-082104

PATIENT
  Age: 39 Year
  Sex: Female

DRUGS (4)
  1. IBUPROFEN (ADVIL) [Concomitant]
  2. YASMIN [Suspect]
     Indication: MENSTRUATION IRREGULAR
     Dosage: UNK
     Dates: start: 20050401, end: 20050101
  3. YAZ [Suspect]
  4. YASMIN [Suspect]
     Dosage: UNK
     Dates: start: 20060701, end: 20070101

REACTIONS (8)
  - PULMONARY EMBOLISM [None]
  - ANXIETY [None]
  - DEEP VEIN THROMBOSIS [None]
  - EMOTIONAL DISTRESS [None]
  - ANHEDONIA [None]
  - FEAR [None]
  - INJURY [None]
  - PAIN [None]
